FAERS Safety Report 13309213 (Version 1)
Quarter: 2017Q1

REPORT INFORMATION
  Report Type: Spontaneous
  Country: BR (occurrence: BR)
  Receive Date: 20170308
  Receipt Date: 20170308
  Transmission Date: 20170428
  Serious: Yes (Hospitalization)
  Sender: FDA-Public Use
  Company Number: BR-ELI_LILLY_AND_COMPANY-BR201703000296

PATIENT
  Sex: Female

DRUGS (1)
  1. CYMBALTA [Suspect]
     Active Substance: DULOXETINE HYDROCHLORIDE
     Indication: PRODUCT USED FOR UNKNOWN INDICATION
     Dosage: UNK UNK, UNKNOWN
     Route: 065
     Dates: start: 2014

REACTIONS (6)
  - Drug dose omission [Unknown]
  - Hypokinesia [Not Recovered/Not Resolved]
  - Loss of consciousness [Recovered/Resolved with Sequelae]
  - Spinal fracture [Recovered/Resolved with Sequelae]
  - Cerebral thrombosis [Recovered/Resolved with Sequelae]
  - Pain [Not Recovered/Not Resolved]

NARRATIVE: CASE EVENT DATE: 2014
